FAERS Safety Report 9325125 (Version 2)
Quarter: 2013Q2

REPORT INFORMATION
  Report Type: Spontaneous
  Country: BR (occurrence: BR)
  Receive Date: 20130603
  Receipt Date: 20130605
  Transmission Date: 20140414
  Serious: Yes (Death, Hospitalization)
  Sender: FDA-Public Use
  Company Number: BR-B.I. PHARMACEUTICALS,INC./RIDGEFIELD-2013-BR-00669BR

PATIENT
  Age: 81 Year
  Sex: Male

DRUGS (4)
  1. SPIRIVA RESPIMAT [Suspect]
     Indication: EMPHYSEMA
     Dosage: 5 MCG
     Route: 055
     Dates: end: 20130526
  2. ALENIA [Concomitant]
     Indication: EMPHYSEMA
  3. CAPTOPRIL [Concomitant]
     Indication: HYPERTENSION
  4. MEDICATION NOT FURTHER SPECIFIED FOR HEART VALVE OBSTRUCTION [Concomitant]
     Indication: CARDIAC VALVE DISEASE

REACTIONS (1)
  - Colon cancer [Fatal]
